FAERS Safety Report 23831277 (Version 4)
Quarter: 2025Q3

REPORT INFORMATION
  Report Type: Report from Study
  Country: KR (occurrence: KR)
  Receive Date: 20240508
  Receipt Date: 20250918
  Transmission Date: 20251020
  Serious: Yes (Other)
  Sender: TAKEDA
  Company Number: KR-TAKEDA-2024TUS043281

PATIENT
  Age: 55 Year
  Sex: Male
  Weight: 60 kg

DRUGS (12)
  1. VEDOLIZUMAB [Suspect]
     Active Substance: VEDOLIZUMAB
     Indication: Colitis ulcerative
  2. MESALAMINE [Concomitant]
     Active Substance: MESALAMINE
     Indication: Colitis ulcerative
     Dosage: 4800 MILLIGRAM, QD
     Dates: start: 20191023
  3. ASACOL [Concomitant]
     Active Substance: MESALAMINE
     Indication: Colitis ulcerative
     Dosage: 500 MILLIGRAM, QD
     Dates: start: 20181122, end: 20220916
  4. Cathejell [Concomitant]
     Indication: Colonoscopy
     Dates: start: 20220805, end: 20220805
  5. Bropium [Concomitant]
     Indication: Colonoscopy
     Dates: start: 20220805, end: 20220805
  6. MEPERIDINE [Concomitant]
     Active Substance: MEPERIDINE
     Indication: Colonoscopy
     Dates: start: 20220805, end: 20220805
  7. MIDAZOLAM [Concomitant]
     Active Substance: MIDAZOLAM
     Indication: Colonoscopy
     Dates: start: 20220805, end: 20220805
  8. PROPOFOL [Concomitant]
     Active Substance: PROPOFOL
     Indication: Colonoscopy
     Dates: start: 20220805, end: 20220805
  9. INFLUENZA VIRUS VACCINE [Concomitant]
     Active Substance: INFLUENZA VIRUS VACCINE
     Indication: Immunisation
     Dates: start: 20221012, end: 20221012
  10. Codaewon forte [Concomitant]
     Indication: Interstitial lung disease
     Dosage: 20 MILLILITER, TID
     Dates: start: 20230221, end: 20230307
  11. ALLEGRA [Concomitant]
     Active Substance: FEXOFENADINE HYDROCHLORIDE
     Indication: Interstitial lung disease
     Dosage: 120 MILLIGRAM, QD
     Dates: start: 20230221, end: 20230307
  12. ERDOSTEINE [Concomitant]
     Active Substance: ERDOSTEINE
     Indication: Interstitial lung disease
     Dosage: 300 MILLIGRAM, TID
     Dates: start: 20230221, end: 20230307

REACTIONS (1)
  - Interstitial lung disease [Recovered/Resolved]

NARRATIVE: CASE EVENT DATE: 20230201
